FAERS Safety Report 5223199-6 (Version None)
Quarter: 2007Q1

REPORT INFORMATION
  Report Type: 
  Country: None (occurrence: None)
  Receive Date: 20070124
  Receipt Date: 20070118
  Transmission Date: 20070707
  Serious: Yes (Other)
  Sender: FDA-Public Use
  Company Number: GXKR2007DE00903

PATIENT
  Age: 97 Year
  Sex: Female

DRUGS (4)
  1. LISINOPRIL [Suspect]
     Dosage: ORAL
     Route: 048
  2. DICLO 75 ID (DICLOFENAC SODIUM) [Concomitant]
  3. AMLODIPINE 5 MG SANDOZ (AMLODIPINE) [Concomitant]
  4. NATFILONG 100 RETARD (NAFTIDROFURYL OXALATE), 100 MG UNK [Concomitant]

REACTIONS (5)
  - CIRCULATORY COLLAPSE [None]
  - COLD SWEAT [None]
  - MALAISE [None]
  - NAUSEA [None]
  - SYNCOPE [None]
